FAERS Safety Report 18367009 (Version 3)
Quarter: 2021Q3

REPORT INFORMATION
  Report Type: Spontaneous
  Country: US (occurrence: US)
  Receive Date: 20201009
  Receipt Date: 20210805
  Transmission Date: 20211014
  Serious: Yes (Hospitalization, Other)
  Sender: FDA-Public Use
  Company Number: US-ASTRAZENECA-2020SF27891

PATIENT
  Age: 21564 Day
  Sex: Male
  Weight: 98 kg

DRUGS (40)
  1. FARXIGA [Suspect]
     Active Substance: DAPAGLIFLOZIN PROPANEDIOL
     Indication: TYPE 2 DIABETES MELLITUS
     Route: 048
     Dates: start: 20170709
  2. PERCOCET [Concomitant]
     Active Substance: ACETAMINOPHEN\OXYCODONE HYDROCHLORIDE
  3. DIGOXIN. [Concomitant]
     Active Substance: DIGOXIN
  4. DILTIAZEM. [Concomitant]
     Active Substance: DILTIAZEM
  5. PRADAXA [Concomitant]
     Active Substance: DABIGATRAN ETEXILATE MESYLATE
  6. FARXIGA [Suspect]
     Active Substance: DAPAGLIFLOZIN PROPANEDIOL
     Indication: WEIGHT DECREASED
     Route: 048
     Dates: start: 20170608, end: 201712
  7. ZOFRAN [Concomitant]
     Active Substance: ONDANSETRON HYDROCHLORIDE
  8. MORPHINE [Concomitant]
     Active Substance: MORPHINE
  9. ENOXAPARIN [Concomitant]
     Active Substance: ENOXAPARIN
  10. PIPERACILLIN. [Concomitant]
     Active Substance: PIPERACILLIN SODIUM
  11. ACETAMINOPHEN. [Concomitant]
     Active Substance: ACETAMINOPHEN
  12. METOPROLOL SUCCINATE. [Concomitant]
     Active Substance: METOPROLOL SUCCINATE
  13. FARXIGA [Suspect]
     Active Substance: DAPAGLIFLOZIN PROPANEDIOL
     Indication: BLOOD PRESSURE DECREASED
     Route: 048
     Dates: start: 20170608, end: 201712
  14. CIPRO [Concomitant]
     Active Substance: CIPROFLOXACIN HYDROCHLORIDE
  15. METOPROLOL. [Concomitant]
     Active Substance: METOPROLOL
  16. METOPROLOL SUCCINATE. [Concomitant]
     Active Substance: METOPROLOL SUCCINATE
  17. VANCOMYCIN [Concomitant]
     Active Substance: VANCOMYCIN
  18. AUGMENTIN [Concomitant]
     Active Substance: AMOXICILLIN\CLAVULANATE POTASSIUM
  19. NOVOLOG [Concomitant]
     Active Substance: INSULIN ASPART
  20. RESTORIL [Concomitant]
     Active Substance: TEMAZEPAM
  21. LISINOPRIL. [Concomitant]
     Active Substance: LISINOPRIL
  22. OXYCODONE [Concomitant]
     Active Substance: OXYCODONE
  23. SODIUM CHLORIDE. [Concomitant]
     Active Substance: SODIUM CHLORIDE
  24. FARXIGA [Suspect]
     Active Substance: DAPAGLIFLOZIN PROPANEDIOL
     Indication: TYPE 2 DIABETES MELLITUS
     Route: 048
     Dates: start: 20170608, end: 201712
  25. FARXIGA [Suspect]
     Active Substance: DAPAGLIFLOZIN PROPANEDIOL
     Indication: BLOOD PRESSURE DECREASED
     Route: 048
     Dates: start: 20170709
  26. DEXTROSE. [Concomitant]
     Active Substance: DEXTROSE
  27. FAMOTIDINE. [Concomitant]
     Active Substance: FAMOTIDINE
  28. POTASSIUM CHLORIDE. [Concomitant]
     Active Substance: POTASSIUM CHLORIDE
  29. FARXIGA [Suspect]
     Active Substance: DAPAGLIFLOZIN PROPANEDIOL
     Indication: WEIGHT DECREASED
     Route: 048
     Dates: start: 20170709
  30. VIAGRA [Concomitant]
     Active Substance: SILDENAFIL CITRATE
  31. IBUPROFEN. [Concomitant]
     Active Substance: IBUPROFEN
  32. FLAGYL [Concomitant]
     Active Substance: METRONIDAZOLE\METRONIDAZOLE HYDROCHLORIDE
  33. ZOSYN [Concomitant]
     Active Substance: PIPERACILLIN SODIUM\TAZOBACTAM SODIUM
  34. HYDROMORPHONE [Concomitant]
     Active Substance: HYDROMORPHONE
  35. ONDANSETRON [Concomitant]
     Active Substance: ONDANSETRON
  36. TRAMADOL HCL [Concomitant]
     Active Substance: TRAMADOL HYDROCHLORIDE
  37. COLACE [Concomitant]
     Active Substance: DOCUSATE SODIUM
  38. NARCAN [Concomitant]
     Active Substance: NALOXONE HYDROCHLORIDE
  39. PHENERGAN [Concomitant]
     Active Substance: PROMETHAZINE HYDROCHLORIDE
  40. CYCLOBENZAPRINE HCL [Concomitant]
     Active Substance: CYCLOBENZAPRINE HYDROCHLORIDE

REACTIONS (16)
  - Cellulitis [Unknown]
  - Renal failure [Unknown]
  - Perirectal abscess [Unknown]
  - Rectal abscess [Unknown]
  - Chronic kidney disease [Unknown]
  - Scrotal abscess [Unknown]
  - Scrotal erythema [Unknown]
  - Fournier^s gangrene [Unknown]
  - Abscess [Unknown]
  - Groin abscess [Unknown]
  - Anal abscess [Unknown]
  - Scrotal cellulitis [Unknown]
  - Necrotising fasciitis [Unknown]
  - Perineal abscess [Unknown]
  - Sepsis [Unknown]
  - Leukocytosis [Unknown]

NARRATIVE: CASE EVENT DATE: 20170709
